FAERS Safety Report 4303021-2 (Version None)
Quarter: 2004Q1

REPORT INFORMATION
  Report Type: 
  Country: None (occurrence: None)
  Receive Date: 20040224
  Receipt Date: 20040213
  Transmission Date: 20041129
  Serious: Yes (Hospitalization)
  Sender: FDA-Public Use
  Company Number: WAES 0402AUS00112

PATIENT
  Age: 62 Year
  Sex: Male
  Weight: 76 kg

DRUGS (9)
  1. ACYCLOVIR [Suspect]
     Indication: HERPES SIMPLEX
     Dates: start: 19920826, end: 19920828
  2. ASPIRIN [Concomitant]
  3. FUROSEMIDE [Concomitant]
  4. NITRAZEPAM [Concomitant]
  5. NITROGLYCERIN [Concomitant]
  6. PHENOBARBITAL [Concomitant]
     Indication: EPILEPSY
  7. PHENYTOIN [Concomitant]
  8. POTASSIUM CHLORIDE [Concomitant]
  9. ZOCOR [Suspect]
     Route: 048
     Dates: end: 19920902

REACTIONS (9)
  - BLOOD CHLORIDE DECREASED [None]
  - BLOOD POTASSIUM INCREASED [None]
  - BLOOD SODIUM DECREASED [None]
  - BUNDLE BRANCH BLOCK LEFT [None]
  - CARDIOMYOPATHY [None]
  - HEPATIC FAILURE [None]
  - LEFT VENTRICULAR FAILURE [None]
  - MYOPATHY [None]
  - RENAL FAILURE ACUTE [None]
